FAERS Safety Report 24632862 (Version 3)
Quarter: 2024Q4

REPORT INFORMATION
  Report Type: Spontaneous
  Country: FR (occurrence: FR)
  Receive Date: 20241118
  Receipt Date: 20241127
  Transmission Date: 20250114
  Serious: Yes (Life-Threatening)
  Sender: REGENERON
  Company Number: None

PATIENT
  Age: 81 Year
  Sex: Male

DRUGS (1)
  1. LIBTAYO [Suspect]
     Active Substance: CEMIPLIMAB-RWLC
     Indication: Squamous cell carcinoma
     Dosage: 350 MG / 3 SEMAINE
     Route: 042
     Dates: start: 20240927, end: 20240927

REACTIONS (3)
  - Rhabdomyolysis [Not Recovered/Not Resolved]
  - Myocarditis [Not Recovered/Not Resolved]
  - Muscular weakness [Not Recovered/Not Resolved]

NARRATIVE: CASE EVENT DATE: 20241015
